FAERS Safety Report 14294063 (Version 2)
Quarter: 2022Q2

REPORT INFORMATION
  Report Type: Spontaneous
  Country: ES (occurrence: ES)
  Receive Date: 20171217
  Receipt Date: 20220622
  Transmission Date: 20220721
  Serious: Yes (Hospitalization)
  Sender: FDA-Public Use
  Company Number: ES-SANOFI-SYNTHELABO-A01200901652

PATIENT

DRUGS (4)
  1. TENOFOVIR [Interacting]
     Active Substance: TENOFOVIR
     Indication: HIV infection CDC category A
     Dosage: UNK, VIREAD TABLET
     Route: 065
  2. EMTRIVA [Interacting]
     Active Substance: EMTRICITABINE
     Indication: HIV infection CDC category A
     Dosage: UNK
     Route: 065
  3. ATAZANAVIR\RITONAVIR [Interacting]
     Active Substance: ATAZANAVIR\RITONAVIR
     Indication: HIV infection CDC category A
     Dosage: UNK
     Route: 065
  4. OMEPRAZOLE [Interacting]
     Active Substance: OMEPRAZOLE
     Indication: Dyspepsia
     Dosage: UNK
     Route: 065

REACTIONS (3)
  - Inhibitory drug interaction [Unknown]
  - Drug interaction [Unknown]
  - Blood HIV RNA increased [Recovered/Resolved]
